FAERS Safety Report 4367287-5 (Version None)
Quarter: 2004Q2

REPORT INFORMATION
  Report Type: 
  Country: None (occurrence: None)
  Receive Date: 20040524
  Receipt Date: 20040510
  Transmission Date: 20050107
  Serious: Yes (Other)
  Sender: FDA-Public Use
  Company Number: FRWYE751410MAY04

PATIENT
  Age: 29 Year
  Sex: Female

DRUGS (1)
  1. TRINORDIOL-21 (LEVONORGESTREL/ETHINYL ESTRADIOL) [Suspect]
     Indication: CONTRACEPTION
     Dosage: 1 TABLET 1X PER 1 DAY ORAL   SEVERAL MONTHS
     Route: 048

REACTIONS (3)
  - DRUG INEFFECTIVE [None]
  - DRUG INTERACTION [None]
  - UNINTENDED PREGNANCY [None]
